FAERS Safety Report 9221010 (Version 1)
Quarter: 2013Q2

REPORT INFORMATION
  Report Type: Spontaneous
  Country: BR (occurrence: BR)
  Receive Date: 20130409
  Receipt Date: 20130409
  Transmission Date: 20140414
  Serious: Yes (Hospitalization)
  Sender: FDA-Public Use
  Company Number: BR-BIOMARINAP-BR-2013-100457

PATIENT
  Sex: Male
  Weight: 43 kg

DRUGS (2)
  1. NAGLAZYME [Suspect]
     Indication: MUCOPOLYSACCHARIDOSIS VI
     Dosage: 45 MG, QW
     Route: 041
     Dates: start: 20031023
  2. HEPARIN [Concomitant]
     Indication: DEVICE OCCLUSION

REACTIONS (2)
  - Adhesion [Unknown]
  - Pyrexia [Unknown]
